FAERS Safety Report 12583122 (Version 1)
Quarter: 2016Q3

REPORT INFORMATION
  Report Type: Spontaneous
  Country: DE (occurrence: DE)
  Receive Date: 20160722
  Receipt Date: 20160722
  Transmission Date: 20161109
  Serious: Yes (Life-Threatening, Hospitalization)
  Sender: FDA-Public Use
  Company Number: GXKR2016DE003516

PATIENT

DRUGS (10)
  1. METOPROLOL. [Concomitant]
     Active Substance: METOPROLOL
     Indication: CORONARY ARTERY DISEASE
     Dosage: DAILY DOSE: 47.5 MG MILLGRAM(S) EVERY DAYS
     Route: 048
  2. HUMINSULIN [Concomitant]
     Active Substance: INSULIN HUMAN
     Indication: DIABETES MELLITUS
  3. PREDNISOLON [Suspect]
     Active Substance: PREDNISOLONE
     Indication: POLYMYALGIA RHEUMATICA
     Dosage: 5 MG, UNK
     Route: 048
  4. KLACID//CLARITHROMYCIN [Suspect]
     Active Substance: CLARITHROMYCIN
     Indication: PNEUMONIA
     Dosage: 500 MG, UNK
     Route: 048
  5. METFORMIN [Concomitant]
     Active Substance: METFORMIN HYDROCHLORIDE
     Indication: DIABETES MELLITUS
     Dosage: UNK
  6. PRADAXA [Suspect]
     Active Substance: DABIGATRAN ETEXILATE MESYLATE
     Indication: DEEP VEIN THROMBOSIS
     Route: 048
  7. FUROSEMIDE. [Concomitant]
     Active Substance: FUROSEMIDE
     Indication: CARDIAC FAILURE
     Dosage: 2-1-0
     Route: 048
  8. PANTOZOL [Concomitant]
     Active Substance: PANTOPRAZOLE SODIUM
     Indication: ANAEMIA
     Dosage: DAILY DOSE: 40 MG MILLGRAM(S) EVERY DAYS
     Route: 048
  9. AUGMENTAN                          /02043401/ [Concomitant]
     Indication: PNEUMONIA
     Dosage: DAILY DOSE: 2 DF DOSAGE FORM EVERY DAYS
     Route: 048
  10. SIMVASTATIN. [Concomitant]
     Active Substance: SIMVASTATIN
     Indication: CORONARY ARTERY DISEASE
     Dosage: DAILY DOSE: 20 MG MILLGRAM(S) EVERY DAYS
     Route: 048

REACTIONS (3)
  - Pulmonary haemorrhage [Recovering/Resolving]
  - Gastrointestinal haemorrhage [Recovering/Resolving]
  - Granulomatosis with polyangiitis [Recovering/Resolving]

NARRATIVE: CASE EVENT DATE: 20160626
